FAERS Safety Report 5429885-7 (Version None)
Quarter: 2007Q3

REPORT INFORMATION
  Report Type: 
  Country: None (occurrence: None)
  Receive Date: 20070827
  Receipt Date: 20070822
  Transmission Date: 20080115
  Serious: Yes (Life-Threatening, Hospitalization, Other)
  Sender: FDA-Public Use
  Company Number: 2007SP016780

PATIENT
  Age: 74 Year
  Weight: 69 kg

DRUGS (2)
  1. TEMODAL [Suspect]
     Indication: LYMPHOMA
     Dosage: 270 MG; QD; PO
     Route: 048
     Dates: start: 20070718
  2. METHOTREXATE [Suspect]
     Indication: LYMPHOMA

REACTIONS (4)
  - HAEMATOTOXICITY [None]
  - HYPOTENSION [None]
  - RESPIRATORY FAILURE [None]
  - SEPTIC SHOCK [None]
